FAERS Safety Report 9173400 (Version 4)
Quarter: 2013Q2

REPORT INFORMATION
  Report Type: Report from Study
  Country: PL (occurrence: PL)
  Receive Date: 20130320
  Receipt Date: 20130517
  Transmission Date: 20140414
  Serious: Yes (Other)
  Sender: FDA-Public Use
  Company Number: PL-NOVOPROD-372534

PATIENT
  Age: 47 Year
  Sex: Male
  Weight: 126.6 kg

DRUGS (2)
  1. LIRAGLUTIDE FLEXPEN [Suspect]
     Indication: OBESITY
     Dosage: 0.6 MG, QD
     Route: 058
     Dates: start: 20110727
  2. LIRAGLUTIDE FLEXPEN [Suspect]
     Dosage: 3.0 MG, QD
     Dates: start: 20110901

REACTIONS (1)
  - Lipase increased [Recovered/Resolved]
